FAERS Safety Report 9268425 (Version 5)
Quarter: 2014Q2

REPORT INFORMATION
  Report Type: Spontaneous
  Country: US (occurrence: US)
  Receive Date: 20130502
  Receipt Date: 20140509
  Transmission Date: 20141212
  Serious: No
  Sender: FDA-Public Use
  Company Number: US-009507513-1304USA016949

PATIENT
  Sex: Male
  Weight: 100.68 kg

DRUGS (2)
  1. PROPECIA [Suspect]
     Indication: ALOPECIA
     Dosage: 1 MG, UNK
     Route: 048
     Dates: start: 19981015, end: 20010710
  2. VALTREX [Concomitant]
     Indication: VIRAL INFECTION
     Dosage: UNK
     Dates: start: 1997

REACTIONS (8)
  - Sexual dysfunction [Not Recovered/Not Resolved]
  - Erectile dysfunction [Not Recovered/Not Resolved]
  - Rosacea [Unknown]
  - Depression [Unknown]
  - Anxiety [Unknown]
  - Upper respiratory tract infection [Unknown]
  - Hernia repair [Unknown]
  - Organic erectile dysfunction [Unknown]
